FAERS Safety Report 6785214-8 (Version None)
Quarter: 2010Q2

REPORT INFORMATION
  Report Type: 
  Country: None (occurrence: None)
  Receive Date: 20100622
  Receipt Date: 20100622
  Transmission Date: 20101027
  Serious: Yes (Hospitalization)
  Sender: FDA-Public Use
  Company Number: None

PATIENT
  Age: 27 Year
  Sex: Female
  Weight: 74.2 kg

DRUGS (4)
  1. BACTRIM [Suspect]
     Indication: ABSCESS
     Dosage: PO (RECENT)
     Route: 048
  2. DOXYCYCLINE [Suspect]
     Indication: INFECTION
     Dosage: PO  (RECENT)
     Route: 048
  3. TYLENOL-500 [Concomitant]
  4. MOTRIN [Concomitant]

REACTIONS (4)
  - DRUG HYPERSENSITIVITY [None]
  - ELECTROCARDIOGRAM Q WAVES [None]
  - PANCYTOPENIA [None]
  - PYREXIA [None]
